FAERS Safety Report 9364487 (Version 1)
Quarter: 2013Q2

REPORT INFORMATION
  Report Type: Spontaneous
  Country: ES (occurrence: None)
  Receive Date: 20130619
  Receipt Date: 20130619
  Transmission Date: 20140414
  Serious: Yes (Other)
  Sender: FDA-Public Use
  Company Number: SYM-2013-04684

PATIENT
  Age: 69 Year
  Sex: Female

DRUGS (9)
  1. CICLOCHEM [Suspect]
     Indication: ONYCHOMYCOSIS
     Route: 061
     Dates: start: 20111019, end: 201110
  2. ACENOCOUMAROL [Suspect]
     Indication: PRODUCT USED FOR UNKNOWN INDICATION
     Route: 048
     Dates: start: 2009, end: 2011
  3. CARVEDILOL (CARVEDILOL) (CARVEDILOL) [Concomitant]
  4. FUROSEMIDE [Concomitant]
  5. AMIODARONE (AMIODARONE) (AMIODARONE) [Concomitant]
  6. ACETYLSALICYCLIC (ACETYLSALICYCLIC ACID) (ACETYLSALICYCLIC ACID) [Concomitant]
  7. FLUVASTATIN (FLUVASTATIN) (FLUVASTATIN) [Concomitant]
  8. METFORMIN (METFORMIN) (METFORMIN) [Concomitant]
  9. OMEPRAZOLE (OMEPRAZOLE) (OMEPRAZOLE) [Concomitant]

REACTIONS (2)
  - Rectal haemorrhage [None]
  - International normalised ratio increased [None]
